FAERS Safety Report 25908513 (Version 2)
Quarter: 2025Q4

REPORT INFORMATION
  Report Type: Spontaneous
  Country: US (occurrence: US)
  Receive Date: 20251010
  Receipt Date: 20251023
  Transmission Date: 20260119
  Serious: Yes (Other)
  Sender: PFIZER
  Company Number: US-PFIZER INC-202500200119

PATIENT
  Sex: Female

DRUGS (1)
  1. DEXTROSE [Suspect]
     Active Substance: DEXTROSE MONOHYDRATE
     Indication: Blood glucose decreased
     Dosage: UNK
     Route: 042

REACTIONS (2)
  - Somnolence [Recovered/Resolved]
  - Condition aggravated [Recovered/Resolved]
